FAERS Safety Report 14946421 (Version 1)
Quarter: 2018Q2

REPORT INFORMATION
  Report Type: Other
  Country: DE (occurrence: DE)
  Receive Date: 20180529
  Receipt Date: 20180529
  Transmission Date: 20180711
  Serious: Yes (Hospitalization)
  Sender: FDA-Public Use
  Company Number: DE-ASTELLAS-2018US023910

PATIENT
  Age: 67 Year
  Sex: Female
  Weight: 45 kg

DRUGS (14)
  1. HCT 1 A PHARMA [Suspect]
     Active Substance: HYDROCHLOROTHIAZIDE
     Indication: PRODUCT USED FOR UNKNOWN INDICATION
     Route: 048
  2. HCT 1 A PHARMA [Suspect]
     Active Substance: HYDROCHLOROTHIAZIDE
     Dosage: DECREASED DOSE, UNKNOWN FREQ.
     Route: 065
  3. NOXAFIL [Concomitant]
     Active Substance: POSACONAZOLE
     Indication: PRODUCT USED FOR UNKNOWN INDICATION
     Route: 048
  4. COTRIM [Concomitant]
     Active Substance: SULFAMETHOXAZOLE\TRIMETHOPRIM
     Indication: PRODUCT USED FOR UNKNOWN INDICATION
     Dosage: 800/160 MG, SCHEMA
     Route: 048
  5. ENTOCORT [Concomitant]
     Active Substance: BUDESONIDE
     Indication: PRODUCT USED FOR UNKNOWN INDICATION
     Route: 048
  6. ARAVA [Concomitant]
     Active Substance: LEFLUNOMIDE
     Indication: PRODUCT USED FOR UNKNOWN INDICATION
     Route: 048
  7. ADVAGRAF [Suspect]
     Active Substance: TACROLIMUS
     Indication: PRODUCT USED FOR UNKNOWN INDICATION
     Route: 048
  8. OXYBUTIN [Concomitant]
     Active Substance: OXYBUTYNIN
     Indication: PRODUCT USED FOR UNKNOWN INDICATION
     Route: 048
  9. PREDNISOLON JENAPHARM [Concomitant]
     Indication: PRODUCT USED FOR UNKNOWN INDICATION
     Dosage: 0.5 MG, ONCE DAILY
     Route: 048
  10. MYFORTIC [Concomitant]
     Active Substance: MYCOPHENOLATE SODIUM
     Indication: PRODUCT USED FOR UNKNOWN INDICATION
     Route: 048
  11. PANTOPRAZOLE SODIUM. [Concomitant]
     Active Substance: PANTOPRAZOLE SODIUM
     Indication: PRODUCT USED FOR UNKNOWN INDICATION
     Route: 048
  12. AMLODIPIN 1 A PHARMA [Concomitant]
     Active Substance: AMLODIPINE BESYLATE
     Indication: PRODUCT USED FOR UNKNOWN INDICATION
     Route: 048
  13. ACICLOVIR 1A FARMA [Suspect]
     Active Substance: ACYCLOVIR
     Indication: PRODUCT USED FOR UNKNOWN INDICATION
     Dosage: 800 MG, 0.5-0-0.5-0, TWICE DAILY
     Route: 048
  14. ACICLOVIR 1A FARMA [Suspect]
     Active Substance: ACYCLOVIR
     Dosage: INCREASED DOSE, UNKNOWN FREQ.
     Route: 065

REACTIONS (9)
  - Syncope [Unknown]
  - General physical health deterioration [Unknown]
  - Dizziness [Unknown]
  - Blood creatinine increased [None]
  - Cachexia [Unknown]
  - Dehydration [Unknown]
  - Alanine aminotransferase increased [None]
  - Fall [Unknown]
  - Aspartate aminotransferase increased [None]
